FAERS Safety Report 22675998 (Version 3)
Quarter: 2024Q3

REPORT INFORMATION
  Report Type: Spontaneous
  Country: FR (occurrence: FR)
  Receive Date: 20230706
  Receipt Date: 20240913
  Transmission Date: 20241016
  Serious: Yes (Other)
  Sender: ASTELLAS
  Company Number: FR-ASTELLAS-2023US019824

PATIENT
  Age: 77 Year
  Sex: Male

DRUGS (4)
  1. XTANDI [Suspect]
     Active Substance: ENZALUTAMIDE
     Indication: Prostate cancer
     Dosage: 160 MG, ONCE DAILY (4 TABLETS OF 40 MG)
     Route: 048
  2. XTANDI [Suspect]
     Active Substance: ENZALUTAMIDE
     Dosage: 120 MG, ONCE DAILY
     Route: 048
  3. XTANDI [Suspect]
     Active Substance: ENZALUTAMIDE
     Dosage: 80 MG, ONCE DAILY
     Route: 048
  4. XTANDI [Suspect]
     Active Substance: ENZALUTAMIDE
     Dosage: 40 MG, ONCE DAILY
     Route: 048

REACTIONS (3)
  - Malignant neoplasm progression [Not Recovered/Not Resolved]
  - Intentional product misuse [Unknown]
  - Underdose [Unknown]
